FAERS Safety Report 20790430 (Version 3)
Quarter: 2022Q4

REPORT INFORMATION
  Report Type: Other
  Country: DE (occurrence: None)
  Receive Date: 20220505
  Receipt Date: 20221020
  Transmission Date: 20230113
  Serious: Yes (Hospitalization, Other)
  Sender: FDA-Public Use
  Company Number: DE-ROCHE-3085540

PATIENT
  Age: 55 Year
  Sex: Male
  Weight: 62 kg

DRUGS (33)
  1. OCRELIZUMAB [Suspect]
     Active Substance: OCRELIZUMAB
     Indication: Secondary progressive multiple sclerosis
     Route: 042
     Dates: start: 20190618, end: 20210119
  2. OCRELIZUMAB [Suspect]
     Active Substance: OCRELIZUMAB
     Route: 042
     Dates: start: 20181203, end: 20181218
  3. METHYLPREDNISOLONE [Concomitant]
     Active Substance: METHYLPREDNISOLONE
     Route: 042
     Dates: start: 20181203, end: 20181203
  4. METHYLPREDNISOLONE [Concomitant]
     Active Substance: METHYLPREDNISOLONE
     Route: 042
     Dates: start: 20190618, end: 20190618
  5. METHYLPREDNISOLONE [Concomitant]
     Active Substance: METHYLPREDNISOLONE
     Route: 042
     Dates: start: 20210119, end: 20210119
  6. METHYLPREDNISOLONE [Concomitant]
     Active Substance: METHYLPREDNISOLONE
     Route: 042
     Dates: start: 20181218, end: 20181218
  7. METHYLPREDNISOLONE [Concomitant]
     Active Substance: METHYLPREDNISOLONE
     Route: 042
     Dates: start: 20200715, end: 20200715
  8. METHYLPREDNISOLONE [Concomitant]
     Active Substance: METHYLPREDNISOLONE
     Route: 042
     Dates: start: 20191217, end: 20191217
  9. RANITIDINE [Concomitant]
     Active Substance: RANITIDINE
     Indication: Premedication
     Route: 042
     Dates: start: 20190618, end: 20190618
  10. RANITIDINE [Concomitant]
     Active Substance: RANITIDINE
     Route: 042
     Dates: start: 20181218, end: 20181218
  11. RANITIDINE [Concomitant]
     Active Substance: RANITIDINE
     Route: 042
     Dates: start: 20181203, end: 20181203
  12. RANITIDINE [Concomitant]
     Active Substance: RANITIDINE
     Route: 042
     Dates: start: 20191217, end: 20191217
  13. IBUPROFEN [Concomitant]
     Active Substance: IBUPROFEN
     Dosage: STOMACH PROTECTION
     Dates: start: 20140414
  14. ACETAMINOPHEN [Concomitant]
     Active Substance: ACETAMINOPHEN
     Route: 048
     Dates: start: 20190618, end: 20190618
  15. ACETAMINOPHEN [Concomitant]
     Active Substance: ACETAMINOPHEN
     Route: 048
     Dates: start: 20191217, end: 20191217
  16. ACETAMINOPHEN [Concomitant]
     Active Substance: ACETAMINOPHEN
     Route: 048
     Dates: start: 20200715, end: 20200715
  17. ACETAMINOPHEN [Concomitant]
     Active Substance: ACETAMINOPHEN
     Route: 048
     Dates: start: 20210119, end: 20210119
  18. DIMETHINDENE [Concomitant]
     Active Substance: DIMETHINDENE
     Route: 042
     Dates: start: 20181203, end: 20181203
  19. DIMETHINDENE [Concomitant]
     Active Substance: DIMETHINDENE
     Route: 042
     Dates: start: 20191217, end: 20191217
  20. DIMETHINDENE [Concomitant]
     Active Substance: DIMETHINDENE
     Route: 042
     Dates: start: 20181218, end: 20181218
  21. DIMETHINDENE [Concomitant]
     Active Substance: DIMETHINDENE
     Route: 042
     Dates: start: 20190618, end: 20190618
  22. RANITIDINE HYDROCHLORIDE [Concomitant]
     Active Substance: RANITIDINE HYDROCHLORIDE
     Route: 042
     Dates: start: 20191217, end: 20191217
  23. DIMETHINDENE MALEATE [Concomitant]
     Active Substance: DIMETHINDENE MALEATE
     Route: 042
     Dates: start: 20200715, end: 20200715
  24. DIMETHINDENE MALEATE [Concomitant]
     Active Substance: DIMETHINDENE MALEATE
     Route: 042
     Dates: start: 20210119, end: 20210119
  25. PANTOZOL [Concomitant]
     Active Substance: PANTOPRAZOLE SODIUM
     Dosage: STOMACH PROTECTION
     Route: 048
     Dates: start: 20140624
  26. CHOLECALCIFEROL [Concomitant]
     Active Substance: CHOLECALCIFEROL
     Indication: Prophylaxis
     Route: 048
     Dates: start: 20140626
  27. BACLOFEN [Concomitant]
     Active Substance: BACLOFEN
     Indication: Muscle spasticity
     Route: 048
     Dates: start: 20200715
  28. ISONIAZID [Concomitant]
     Active Substance: ISONIAZID
     Route: 048
     Dates: start: 20181022, end: 20200325
  29. DALFAMPRIDINE [Concomitant]
     Active Substance: DALFAMPRIDINE
     Indication: Multiple sclerosis
     Route: 048
     Dates: start: 20160726
  30. GABAPENTIN [Concomitant]
     Active Substance: GABAPENTIN
     Dosage: STOMACH PROTECTION
     Dates: start: 20140604
  31. INTERFERON BETA-1A [Concomitant]
     Active Substance: INTERFERON BETA-1A
     Dates: start: 20130709, end: 20130807
  32. INTERFERON BETA-1A [Concomitant]
     Active Substance: INTERFERON BETA-1A
     Route: 058
     Dates: start: 20130812, end: 20140626
  33. NATALIZUMAB [Concomitant]
     Active Substance: NATALIZUMAB
     Dates: start: 20140701, end: 20180605

REACTIONS (2)
  - Quadriparesis [Not Recovered/Not Resolved]
  - Coronavirus infection [Recovered/Resolved]

NARRATIVE: CASE EVENT DATE: 20220310
